FAERS Safety Report 26175975 (Version 1)
Quarter: 2025Q4

REPORT INFORMATION
  Report Type: Spontaneous
  Country: RU (occurrence: RU)
  Receive Date: 20251218
  Receipt Date: 20251218
  Transmission Date: 20260118
  Serious: Yes (Other)
  Sender: NOVARTIS
  Company Number: RU-002147023-NVSC2025RU191502

PATIENT
  Sex: Male

DRUGS (1)
  1. COSENTYX [Suspect]
     Active Substance: SECUKINUMAB
     Indication: Axial spondyloarthritis
     Dosage: 1 ML (150MG/ML)
     Route: 065
     Dates: start: 20240506

REACTIONS (4)
  - Colitis ulcerative [Unknown]
  - Abdominal pain [Unknown]
  - Diarrhoea [Unknown]
  - Terminal ileitis [Unknown]

NARRATIVE: CASE EVENT DATE: 20251125
